FAERS Safety Report 7808848-8 (Version None)
Quarter: 2011Q4

REPORT INFORMATION
  Report Type: 
  Country: None (occurrence: None)
  Receive Date: 20111012
  Receipt Date: 20111006
  Transmission Date: 20120403
  Serious: Yes (Hospitalization)
  Sender: FDA-Public Use
  Company Number: PHHY2011VE88628

PATIENT
  Sex: Female

DRUGS (5)
  1. SARELSO [Concomitant]
     Indication: PULMONARY THROMBOSIS
     Dosage: UNK UKN, UNK
  2. TRASLAN [Concomitant]
     Dosage: UNK UKN, UNK
  3. ZOLEDRONOC ACID [Suspect]
     Indication: OSTEOPOROSIS
     Dosage: 5 MG, UNK
     Route: 042
     Dates: start: 20100101
  4. ACABEL [Concomitant]
     Dosage: 8 MG, UNK
  5. CALCIUM CARBONATE [Concomitant]
     Dosage: 1250 MG, UNK

REACTIONS (1)
  - HIP FRACTURE [None]
